FAERS Safety Report 8352351-6 (Version None)
Quarter: 2012Q2

REPORT INFORMATION
  Report Type: 
  Country: None (occurrence: None)
  Receive Date: 20120511
  Receipt Date: 20120507
  Transmission Date: 20120825
  Serious: Yes (Hospitalization)
  Sender: FDA-Public Use
  Company Number: US-PFIZER INC-2012111516

PATIENT
  Sex: Male
  Weight: 103 kg

DRUGS (3)
  1. ASPIRIN [Concomitant]
     Dosage: 100 MG, DAILY
  2. LIPITOR [Suspect]
     Dosage: DAILY
     Route: 048
  3. VITAMIN B1 TAB [Concomitant]
     Dosage: UNK

REACTIONS (5)
  - WEIGHT DECREASED [None]
  - CERVICAL VERTEBRAL FRACTURE [None]
  - SPINAL FRACTURE [None]
  - UPPER LIMB FRACTURE [None]
  - FALL [None]
